FAERS Safety Report 8477311-6 (Version None)
Quarter: 2012Q2

REPORT INFORMATION
  Report Type: 
  Country: None (occurrence: None)
  Receive Date: 20120629
  Receipt Date: 20120619
  Transmission Date: 20120825
  Serious: Yes (Other)
  Sender: FDA-Public Use
  Company Number: US-JNJFOC-20120611184

PATIENT
  Sex: Female
  Weight: 54.43 kg

DRUGS (3)
  1. INVEGA [Suspect]
     Indication: BIPOLAR DISORDER
     Route: 048
     Dates: start: 20120515, end: 20120501
  2. INVEGA [Suspect]
     Dosage: HALF TABLET OF 6 MG
     Route: 048
  3. INVEGA [Suspect]
     Route: 048
     Dates: start: 20110501, end: 20120501

REACTIONS (5)
  - SUICIDAL IDEATION [None]
  - ABNORMAL WEIGHT GAIN [None]
  - INSOMNIA [None]
  - DISCOMFORT [None]
  - DRUG PRESCRIBING ERROR [None]
